FAERS Safety Report 12105137 (Version 1)
Quarter: 2016Q1

REPORT INFORMATION
  Report Type: Spontaneous
  Country: US (occurrence: US)
  Receive Date: 20160223
  Receipt Date: 20160223
  Transmission Date: 20160526
  Serious: Yes (Other)
  Sender: FDA-Public Use
  Company Number: PHEH2016US004183

PATIENT
  Sex: Male
  Weight: 52.61 kg

DRUGS (1)
  1. VOTRIENT [Suspect]
     Active Substance: PAZOPANIB HYDROCHLORIDE
     Indication: RENAL CANCER METASTATIC
     Dosage: 4 DF, QD
     Route: 048
     Dates: start: 201501, end: 201506

REACTIONS (1)
  - Malignant neoplasm progression [Unknown]
